FAERS Safety Report 25097410 (Version 1)
Quarter: 2025Q1

REPORT INFORMATION
  Report Type: Spontaneous
  Country: LT (occurrence: LT)
  Receive Date: 20250320
  Receipt Date: 20250320
  Transmission Date: 20250408
  Serious: Yes (Death, Hospitalization, Other)
  Sender: RANBAXY
  Company Number: LT-SUN PHARMACEUTICAL INDUSTRIES LTD-2025R1-499101

PATIENT
  Age: 50 Year
  Sex: Female
  Weight: 56 kg

DRUGS (2)
  1. CARBOPLATIN [Suspect]
     Active Substance: CARBOPLATIN
     Indication: Chemotherapy
     Route: 065
  2. TOPOTECAN [Suspect]
     Active Substance: TOPOTECAN HYDROCHLORIDE
     Indication: Chemotherapy
     Route: 065

REACTIONS (8)
  - Condition aggravated [Fatal]
  - Disease progression [Fatal]
  - Drug ineffective [Fatal]
  - Illness [Unknown]
  - Ileus [Unknown]
  - Vomiting [Unknown]
  - Abdominal pain [Unknown]
  - Oral fungal infection [Unknown]
